FAERS Safety Report 6068894-4 (Version None)
Quarter: 2009Q1

REPORT INFORMATION
  Report Type: 
  Country: None (occurrence: None)
  Receive Date: 20090206
  Receipt Date: 20090127
  Transmission Date: 20090719
  Serious: Yes (Hospitalization)
  Sender: FDA-Public Use
  Company Number: US-ELI_LILLY_AND_COMPANY-US200901005022

PATIENT
  Age: 67 Year
  Sex: Male

DRUGS (8)
  1. BYETTA [Suspect]
     Indication: TYPE 2 DIABETES MELLITUS
     Dosage: 15 UG, 2/D
     Dates: end: 20090122
  2. ZOCOR [Concomitant]
     Indication: HYPERLIPIDAEMIA
  3. NIASPAN [Concomitant]
     Indication: HYPERLIPIDAEMIA
  4. COZAAR [Concomitant]
     Indication: HYPERTENSION
     Dosage: 100 MG, UNK
  5. METFORMIN HCL [Concomitant]
     Indication: TYPE 2 DIABETES MELLITUS
     Dosage: 1000 MG, UNK
  6. SYNTHROID [Concomitant]
     Indication: HYPOTHYROIDISM
     Dosage: 120 UG, DAILY (1/D)
  7. LASIX [Concomitant]
     Indication: HYPERTENSION
     Dosage: 40 MG, 2/D
  8. POTASSIUM CHLORIDE [Concomitant]
     Indication: PROPHYLAXIS

REACTIONS (1)
  - PANCREATITIS ACUTE [None]
